FAERS Safety Report 23635820 (Version 1)
Quarter: 2024Q1

REPORT INFORMATION
  Report Type: Other
  Country: US (occurrence: None)
  Receive Date: 20240315
  Receipt Date: 20240315
  Transmission Date: 20240410
  Serious: Yes (Other)
  Sender: FDA-Public Use
  Company Number: US-ROCHE-3508392

PATIENT
  Sex: Male

DRUGS (2)
  1. CELLCEPT [Suspect]
     Active Substance: MYCOPHENOLATE MOFETIL
     Indication: Iridocyclitis
     Route: 048
     Dates: start: 20220809
  2. CELLCEPT [Suspect]
     Active Substance: MYCOPHENOLATE MOFETIL
     Indication: Iridocyclitis
     Dosage: 3 BID
     Route: 048

REACTIONS (2)
  - Off label use [Unknown]
  - Neoplasm malignant [Unknown]
